FAERS Safety Report 9399426 (Version 4)
Quarter: 2014Q2

REPORT INFORMATION
  Report Type: Spontaneous
  Country: BR (occurrence: BR)
  Receive Date: 20130715
  Receipt Date: 20140502
  Transmission Date: 20141212
  Serious: Yes (Other)
  Sender: FDA-Public Use
  Company Number: BR-ROCHE-1248425

PATIENT
  Sex: Male
  Weight: 50 kg

DRUGS (4)
  1. XELODA [Suspect]
     Indication: GASTROINTESTINAL CARCINOMA
     Route: 048
     Dates: start: 2013, end: 201308
  2. XELODA [Suspect]
     Indication: COLORECTAL CANCER
     Route: 048
  3. OMEPRAZOLE [Concomitant]
     Route: 065
  4. IMOSEC [Concomitant]

REACTIONS (30)
  - Eye haemorrhage [Not Recovered/Not Resolved]
  - Mouth haemorrhage [Not Recovered/Not Resolved]
  - Haemorrhage [Not Recovered/Not Resolved]
  - Diarrhoea [Recovered/Resolved]
  - Thyroid neoplasm [Unknown]
  - Swelling [Not Recovered/Not Resolved]
  - Skin wound [Recovered/Resolved]
  - Hypersensitivity [Unknown]
  - Dry skin [Unknown]
  - Dysphagia [Recovered/Resolved]
  - Skin discolouration [Recovered/Resolved]
  - Onychomadesis [Recovered/Resolved]
  - Skin exfoliation [Recovering/Resolving]
  - Ageusia [Recovered/Resolved]
  - Aspartate aminotransferase increased [Not Recovered/Not Resolved]
  - Blood bilirubin increased [Recovered/Resolved]
  - Blood urea increased [Recovered/Resolved]
  - Haemoglobin decreased [Not Recovered/Not Resolved]
  - Haematocrit decreased [Not Recovered/Not Resolved]
  - Mean cell volume increased [Not Recovered/Not Resolved]
  - Mean cell haemoglobin increased [Not Recovered/Not Resolved]
  - Red cell distribution width increased [Not Recovered/Not Resolved]
  - White blood cell count decreased [Not Recovered/Not Resolved]
  - Neutrophil count decreased [Unknown]
  - Prothrombin time prolonged [Unknown]
  - International normalised ratio increased [Unknown]
  - Blood calcium decreased [Unknown]
  - Immunodeficiency [Recovered/Resolved]
  - Peripheral swelling [Recovered/Resolved]
  - Malaise [Recovered/Resolved]
